FAERS Safety Report 10020689 (Version 1)
Quarter: 2014Q1

REPORT INFORMATION
  Report Type: Spontaneous
  Country: DE (occurrence: DE)
  Receive Date: 20140319
  Receipt Date: 20140319
  Transmission Date: 20141002
  Serious: Yes (Other)
  Sender: FDA-Public Use
  Company Number: DE-DRREDDYS-GER/GER/14/0038791

PATIENT
  Age: 16 Year
  Sex: Female
  Weight: 57 kg

DRUGS (7)
  1. IBUBETA 400 AKUT (IBUPROFEN) [Suspect]
     Indication: PRODUCT USED FOR UNKNOWN INDICATION
     Route: 048
     Dates: start: 20140308, end: 20140308
  2. PANTOZOL 20 [Suspect]
     Indication: PRODUCT USED FOR UNKNOWN INDICATION
     Route: 048
     Dates: start: 20140308, end: 20140308
  3. DIMENHYDRINATE [Suspect]
     Indication: PRODUCT USED FOR UNKNOWN INDICATION
     Route: 048
     Dates: start: 20140308, end: 20140308
  4. PARACETAMOL 500 [Suspect]
     Indication: PRODUCT USED FOR UNKNOWN INDICATION
     Route: 048
     Dates: start: 20140308, end: 20140308
  5. TEGRETAL [Suspect]
     Indication: PRODUCT USED FOR UNKNOWN INDICATION
     Dates: start: 20140308, end: 20140308
  6. IRON [Suspect]
     Indication: PRODUCT USED FOR UNKNOWN INDICATION
     Route: 048
     Dates: start: 20140308, end: 20140308
  7. ATROPINE SULFATE\MERCURIC CYANIDE\POTASSIUM DICHROMATE [Suspect]
     Indication: PRODUCT USED FOR UNKNOWN INDICATION
     Route: 048
     Dates: start: 20140308, end: 20140308

REACTIONS (2)
  - Intentional overdose [Unknown]
  - No adverse event [Unknown]
